FAERS Safety Report 9722873 (Version 1)
Quarter: 2013Q4

REPORT INFORMATION
  Report Type: Spontaneous
  Country: US (occurrence: None)
  Receive Date: 20131126
  Receipt Date: 20131126
  Transmission Date: 20140711
  Serious: Yes (Death, Hospitalization)
  Sender: FDA-Public Use
  Company Number: 2013P1021124

PATIENT
  Age: 29 Year
  Sex: Female

DRUGS (5)
  1. BUPROPION [Suspect]
     Dosage: X1
  2. QUETIAPIN [Suspect]
     Dosage: X1
  3. DESVENLAFAXINE [Suspect]
     Dosage: X1
  4. ESCITALOPRAM [Suspect]
     Dosage: X1
  5. IBUPROFEN [Suspect]
     Dosage: X1

REACTIONS (6)
  - Circulatory collapse [None]
  - Pulseless electrical activity [None]
  - Overdose [None]
  - Sinus tachycardia [None]
  - Hypotension [None]
  - Brain injury [None]
